FAERS Safety Report 4580955-5 (Version None)
Quarter: 2005Q1

REPORT INFORMATION
  Report Type: 
  Country: None (occurrence: None)
  Receive Date: 20050214
  Receipt Date: 20040702
  Transmission Date: 20050727
  Serious: No
  Sender: FDA-Public Use
  Company Number: US-GLAXOSMITHKLINE-A0516926A

PATIENT
  Age: 63 Year
  Sex: Female

DRUGS (6)
  1. LAMICTAL [Suspect]
     Indication: ILL-DEFINED DISORDER
     Dosage: 100MG TWICE PER DAY
     Route: 048
     Dates: start: 20030501
  2. LOPRESSOR [Concomitant]
  3. PROZAC [Concomitant]
  4. HYDROCHLOROTHIAZIDE [Concomitant]
  5. PREMARIN [Concomitant]
  6. CLARITIN [Concomitant]

REACTIONS (1)
  - CONTUSION [None]
